FAERS Safety Report 11194679 (Version 1)
Quarter: 2015Q2

REPORT INFORMATION
  Report Type: Report from Study
  Country: US (occurrence: US)
  Receive Date: 20150617
  Receipt Date: 20150617
  Transmission Date: 20150821
  Serious: Yes (Death)
  Sender: FDA-Public Use
  Company Number: US-ACTELION-A-NJ2015-119149

PATIENT
  Age: 85 Year
  Sex: Female

DRUGS (13)
  1. NEXIUM [Concomitant]
     Active Substance: ESOMEPRAZOLE MAGNESIUM
  2. CARDURA [Concomitant]
     Active Substance: DOXAZOSIN MESYLATE
  3. NORVASC [Concomitant]
     Active Substance: AMLODIPINE BESYLATE
  4. VESICARE [Concomitant]
     Active Substance: SOLIFENACIN SUCCINATE
  5. POTASSIUM [Concomitant]
     Active Substance: POTASSIUM
  6. COREG [Concomitant]
     Active Substance: CARVEDILOL
  7. TRACLEER [Suspect]
     Active Substance: BOSENTAN\BOSENTAN MONOHYDRATE
     Indication: PULMONARY ARTERIAL HYPERTENSION
     Route: 048
  8. NEURONTIN [Concomitant]
     Active Substance: GABAPENTIN
  9. LASIX [Concomitant]
     Active Substance: FUROSEMIDE
  10. TRADJENTA [Concomitant]
     Active Substance: LINAGLIPTIN
  11. OPSUMIT [Suspect]
     Active Substance: MACITENTAN
     Indication: PULMONARY ARTERIAL HYPERTENSION
     Dosage: 10 UNK, UNK
     Route: 048
  12. LISINOPRIL. [Concomitant]
     Active Substance: LISINOPRIL
  13. AMITRIPTYLINE [Concomitant]
     Active Substance: AMITRIPTYLINE

REACTIONS (2)
  - Respiratory failure [Fatal]
  - Adenocarcinoma [Fatal]
